FAERS Safety Report 6914458-7 (Version None)
Quarter: 2010Q3

REPORT INFORMATION
  Report Type: 
  Country: None (occurrence: None)
  Receive Date: 20100805
  Receipt Date: 20100805
  Transmission Date: 20110219
  Serious: Yes (Other)
  Sender: FDA-Public Use
  Company Number: None

PATIENT
  Age: 47 Year
  Sex: Female
  Weight: 67.1324 kg

DRUGS (2)
  1. ESTRACE [Suspect]
     Indication: ATROPHIC VULVOVAGINITIS
     Dosage: 1 GRAM 2 NIGHTS IN A ROW
     Dates: start: 20100721, end: 20100728
  2. ESTRACE [Suspect]
     Indication: VULVOVAGINAL DRYNESS
     Dosage: 1 GRAM 2 NIGHTS IN A ROW
     Dates: start: 20100721, end: 20100728

REACTIONS (3)
  - FATIGUE [None]
  - HEADACHE [None]
  - VAGINAL INFECTION [None]
